FAERS Safety Report 17039180 (Version 5)
Quarter: 2020Q2

REPORT INFORMATION
  Report Type: Spontaneous
  Country: US (occurrence: US)
  Receive Date: 20191115
  Receipt Date: 20200604
  Transmission Date: 20200713
  Serious: Yes (Hospitalization, Other)
  Sender: FDA-Public Use
  Company Number: US-SA-2019SA312503

PATIENT

DRUGS (22)
  1. AMILORIDE HCL [Concomitant]
     Active Substance: AMILORIDE HYDROCHLORIDE
  2. VENTOLIN HFA [Concomitant]
     Active Substance: ALBUTEROL SULFATE
  3. DUPIXENT [Suspect]
     Active Substance: DUPILUMAB
     Indication: ASTHMA
     Dosage: 300 MG, QOW
     Route: 058
     Dates: start: 20191024
  4. ONDANSETRON HCL [Concomitant]
     Active Substance: ONDANSETRON HYDROCHLORIDE
  5. BREO ELLIPTA [Concomitant]
     Active Substance: FLUTICASONE FUROATE\VILANTEROL TRIFENATATE
  6. LIDO PRILO CAINE PACK [Concomitant]
  7. OXYCODONE HYDROCHLORIDE. [Concomitant]
     Active Substance: OXYCODONE HYDROCHLORIDE
  8. HYDROXYZINE PAMOATE. [Concomitant]
     Active Substance: HYDROXYZINE PAMOATE
  9. PROBIOTICS NOS [Concomitant]
     Active Substance: PROBIOTICS NOS
  10. DUPIXENT [Suspect]
     Active Substance: DUPILUMAB
     Indication: ASTHMA
  11. DUPIXENT [Suspect]
     Active Substance: DUPILUMAB
     Indication: HYPOXIA
  12. XOPENEX [Concomitant]
     Active Substance: LEVALBUTEROL HYDROCHLORIDE
  13. MS CONTIN [Concomitant]
     Active Substance: MORPHINE SULFATE
  14. XANAX [Concomitant]
     Active Substance: ALPRAZOLAM
  15. DUPIXENT [Suspect]
     Active Substance: DUPILUMAB
     Indication: CUTANEOUS LUPUS ERYTHEMATOSUS
  16. CYCLOBENZAPRINE HCL [Concomitant]
     Active Substance: CYCLOBENZAPRINE HYDROCHLORIDE
  17. BENLYSTA [Concomitant]
     Active Substance: BELIMUMAB
  18. ZOLPIDEM TARTRATE. [Concomitant]
     Active Substance: ZOLPIDEM TARTRATE
     Dosage: UNK
  19. NYSTATIN. [Concomitant]
     Active Substance: NYSTATIN
  20. TYLENOL [Concomitant]
     Active Substance: ACETAMINOPHEN
  21. CARAFATE [Concomitant]
     Active Substance: SUCRALFATE
  22. DICYCLOMINE HCL [Concomitant]
     Active Substance: DICYCLOMINE HYDROCHLORIDE

REACTIONS (11)
  - Lupus pleurisy [Unknown]
  - Malaise [Unknown]
  - Hospitalisation [Unknown]
  - Pyrexia [Unknown]
  - Product use in unapproved indication [Unknown]
  - Confusional state [Unknown]
  - Product dose omission [Unknown]
  - Infection [Unknown]
  - Injection site pain [Unknown]
  - Asthma [Unknown]
  - Tooth disorder [Unknown]

NARRATIVE: CASE EVENT DATE: 201911
